FAERS Safety Report 8175384-1 (Version None)
Quarter: 2012Q1

REPORT INFORMATION
  Report Type: 
  Country: None (occurrence: None)
  Receive Date: 20120229
  Receipt Date: 20120222
  Transmission Date: 20120608
  Serious: Yes (Other)
  Sender: FDA-Public Use
  Company Number: BR-PFIZER INC-2012043533

PATIENT
  Age: 38 Year
  Sex: Female
  Weight: 57 kg

DRUGS (4)
  1. DIPIRONA [Concomitant]
     Indication: PAIN
     Dosage: UNK
  2. DOSTINEX [Concomitant]
     Indication: BLOOD PROLACTIN INCREASED
     Dosage: UNK
  3. ACETAMINOPHEN [Concomitant]
     Indication: PAIN
     Dosage: UNK
  4. XALATAN [Suspect]
     Indication: GLAUCOMA
     Dosage: 3 UG, ONE DROP IN EACH EYE
     Route: 047
     Dates: start: 20101001

REACTIONS (2)
  - EYE PAIN [None]
  - GLAUCOMA [None]
